FAERS Safety Report 6541091-1 (Version None)
Quarter: 2010Q1

REPORT INFORMATION
  Report Type: 
  Country: None (occurrence: None)
  Receive Date: 20100118
  Receipt Date: 20100113
  Transmission Date: 20100710
  Serious: Yes (Hospitalization)
  Sender: FDA-Public Use
  Company Number: US-BRISTOL-MYERS SQUIBB COMPANY-14836415

PATIENT
  Age: 67 Year
  Sex: Male
  Weight: 63 kg

DRUGS (1)
  1. ERBITUX [Suspect]
     Indication: OESOPHAGEAL ADENOCARCINOMA
     Dosage: INTERRUPTED ON 26OCT09.

REACTIONS (13)
  - ASTHENIA [None]
  - DEVICE RELATED INFECTION [None]
  - DIARRHOEA [None]
  - ELECTROLYTE IMBALANCE [None]
  - ESCHERICHIA INFECTION [None]
  - HYPOKALAEMIA [None]
  - HYPOMAGNESAEMIA [None]
  - KLEBSIELLA INFECTION [None]
  - MALNUTRITION [None]
  - NEUROPATHY PERIPHERAL [None]
  - PANCYTOPENIA [None]
  - SCROTAL SWELLING [None]
  - SEPTIC SHOCK [None]
